FAERS Safety Report 7663073-9 (Version None)
Quarter: 2011Q3

REPORT INFORMATION
  Report Type: 
  Country: None (occurrence: None)
  Receive Date: 20110805
  Receipt Date: 20100824
  Transmission Date: 20111222
  Serious: No
  Sender: FDA-Public Use
  Company Number: US-ABBOTT-10P-163-0666968-00

PATIENT
  Sex: Female
  Weight: 106.69 kg

DRUGS (6)
  1. SYNTHROID [Concomitant]
     Indication: HYPOTHYROIDISM
     Dates: start: 20030101
  2. WELLBUTRIN [Concomitant]
     Indication: DEPRESSION
  3. UNKNOWN BIRTH CONTROL [Concomitant]
     Indication: PRODUCT USED FOR UNKNOWN INDICATION
  4. NEXIUM [Concomitant]
     Indication: GASTROOESOPHAGEAL REFLUX DISEASE
  5. NEXIUM [Concomitant]
     Indication: DYSPEPSIA
  6. NIASPAN [Suspect]
     Indication: BLOOD TRIGLYCERIDES INCREASED
     Dates: start: 20100601

REACTIONS (2)
  - VULVOVAGINAL PRURITUS [None]
  - AMENORRHOEA [None]
